FAERS Safety Report 4649443-1 (Version None)
Quarter: 2005Q2

REPORT INFORMATION
  Report Type: 
  Country: None (occurrence: None)
  Receive Date: 20050428
  Receipt Date: 20050428
  Transmission Date: 20051028
  Serious: Yes (Other)
  Sender: FDA-Public Use
  Company Number: None

PATIENT
  Age: 64 Year
  Sex: Female
  Weight: 90.7194 kg

DRUGS (2)
  1. NEURONTIN [Suspect]
     Indication: CONVULSION
     Dosage: 600MG  (3 TIMES DAILY)
  2. NEURONTIN [Suspect]
     Indication: DEMENTIA
     Dosage: 600MG  (3 TIMES DAILY)

REACTIONS (2)
  - DRUG EFFECT DECREASED [None]
  - PHARMACEUTICAL PRODUCT COMPLAINT [None]
